FAERS Safety Report 9049008 (Version 1)
Quarter: 2013Q1

REPORT INFORMATION
  Report Type: Spontaneous
  Country: US (occurrence: None)
  Receive Date: 20130129
  Receipt Date: 20130129
  Transmission Date: 20140127
  Serious: Yes (Other)
  Sender: FDA-Public Use
  Company Number: None

PATIENT
  Sex: Female

DRUGS (1)
  1. LAMOTRIGINE [Suspect]
     Dosage: 200  MG   2 QD   ORAL?2010-2011
     Route: 048
     Dates: start: 2010, end: 2011

REACTIONS (4)
  - Product substitution issue [None]
  - Drug ineffective [None]
  - Mood altered [None]
  - Condition aggravated [None]
